FAERS Safety Report 21220941 (Version 2)
Quarter: 2022Q3

REPORT INFORMATION
  Report Type: Spontaneous
  Country: US (occurrence: US)
  Receive Date: 20220817
  Receipt Date: 20220825
  Transmission Date: 20221027
  Serious: Yes (Other)
  Sender: FDA-Public Use
  Company Number: US-CELLTRION INC.-2022US013030

PATIENT

DRUGS (21)
  1. TRUXIMA [Suspect]
     Active Substance: RITUXIMAB-ABBS
     Indication: Immune thrombocytopenia
     Dosage: 900 MILLIGRAM, IV PIGGYBACK EVERY 7 DAYS; 08/11, 08/18, 08/25/2022 FOR 900 MG IV PIGGYBACK EVERY 7 D
     Route: 042
     Dates: start: 20220804
  2. TRUXIMA [Suspect]
     Active Substance: RITUXIMAB-ABBS
     Dosage: 900 MILLIGRAM, IV PIGGYBACK EVERY 7 DAYS; 08/11, 08/18, 08/25/2022 FOR 900 MG IV PIGGYBACK EVERY 7 D
     Route: 042
     Dates: start: 20220804
  3. TRUXIMA [Suspect]
     Active Substance: RITUXIMAB-ABBS
     Dosage: 900 MILLIGRAM, IV PIGGYBACK EVERY 7 DAYS; 08/11, 08/18, 08/25/2022 FOR 900 MG IV PIGGYBACK EVERY 7 D
     Route: 042
     Dates: start: 20220811
  4. TRUXIMA [Suspect]
     Active Substance: RITUXIMAB-ABBS
     Dosage: 900 MILLIGRAM, IV PIGGYBACK EVERY 7 DAYS; 08/11, 08/18, 08/25/2022 FOR 900 MG IV PIGGYBACK EVERY 7 D
     Route: 042
     Dates: start: 20220818
  5. ACYCLOVIR [Concomitant]
     Active Substance: ACYCLOVIR
     Dosage: 1 TABS, BID #60 TABS, 9 REFILL(S)
     Route: 048
  6. CENTRUM SILVER [ASCORBIC ACID;BETACAROTENE;BIOTIN;CALCIUM PHOSPHATE;CH [Concomitant]
     Dosage: 1 TABS, DAILY #30 TABS, 9 REFILL(S)
     Route: 048
  7. FLUTICASONE [Concomitant]
     Active Substance: FLUTICASONE
     Dosage: NASAL, DAILY (27.5 MCG/INH) 0 REFILL(S)
     Route: 045
  8. OXYCODONE [Concomitant]
     Active Substance: OXYCODONE
     Indication: Pain
     Dosage: 1 TABS, EVERY 6 HR, PRN AS NEEDED FOR PAIN, #12 TABS, 0 REFILL(S)
     Route: 048
  9. PROCHLORPERAZINE [Concomitant]
     Active Substance: PROCHLORPERAZINE
     Indication: Nausea
     Dosage: 1 TABS, EVERY 6 HR, PRN NAUSEA, #30 TABS, 0 REFILL(S)
     Route: 048
  10. LORAZEPAM [Concomitant]
     Active Substance: LORAZEPAM
     Indication: Nausea
     Dosage: 1 TABS, EVERY 4 HR PRN NAUSEA, #20 TABS, 0 REFILL(S)
     Route: 048
  11. ACETAMINOPHEN [Concomitant]
     Active Substance: ACETAMINOPHEN
     Indication: Pyrexia
     Dosage: 1 TABS, EVERY 4 HR, PRN FEVER/MILD PAIN, 0 REFILL(S)
     Route: 048
  12. ACETAMINOPHEN [Concomitant]
     Active Substance: ACETAMINOPHEN
     Indication: Pain
  13. PREDNISONE [Concomitant]
     Active Substance: PREDNISONE
     Dosage: 1 TABS, BID, #5 TABS, 0 REFILL(S)
     Route: 048
  14. DEXAMETHASONE [Concomitant]
     Active Substance: DEXAMETHASONE
     Dosage: 2 DROPS, EYE-BOTH, QID, 0 REFILL(S)
     Route: 047
  15. AMLODIPINE [Concomitant]
     Active Substance: AMLODIPINE BESYLATE
     Dosage: 1 TABS, DAILY, #30 TABS, 6 REFILL(S)
     Route: 048
  16. CLARITIN-D 12 HOUR [Concomitant]
     Active Substance: LORATADINE\PSEUDOEPHEDRINE SULFATE
     Dosage: 1 TABS, DAILY, 0 REFILL(S)
     Route: 048
  17. TYLENOL EXTRA STRENGTH [Concomitant]
     Active Substance: ACETAMINOPHEN
     Dosage: 500 MILLIGRAM, EVERY 7 DAYS X 4 DOSES (STOP DATE: 09/01/2022)
     Route: 048
     Dates: start: 20220804
  18. BENADRYL [Concomitant]
     Active Substance: DIPHENHYDRAMINE HYDROCHLORIDE
     Dosage: 25 MG, EVERY 7 DAYS X 4 DOSES (STOP DATE: 09/01/2022)
     Route: 048
     Dates: start: 20220804
  19. ALTEPLASE [Concomitant]
     Active Substance: ALTEPLASE
     Dosage: 2 MG, IV PUSH, AS DIRECTED PRN X 365 DAYS, INJECTABLE (STOP DATE: 07/222/23)
     Route: 042
     Dates: start: 20220722
  20. SODIUM CHLORIDE [Concomitant]
     Active Substance: SODIUM CHLORIDE
     Dosage: DOSE RANGE: 10-20 , FLUSH, AS DIRECTED PRN, X 365 DAYS, SOLN-IV (STOP DATE: 07/22/23)
     Route: 042
     Dates: start: 20220722
  21. HEPARIN SODIUM [Concomitant]
     Active Substance: HEPARIN SODIUM
     Dosage: 300 UNITS = 3 ML, FLUSH, AS DIRECTED PRN, X 365 DAYS, INJECTABLE (STOP DATE: 07/22/23)
     Route: 042
     Dates: start: 20220722

REACTIONS (2)
  - Immune thrombocytopenia [Unknown]
  - Off label use [Unknown]
